FAERS Safety Report 10418478 (Version 1)
Quarter: 2014Q3

REPORT INFORMATION
  Report Type: Spontaneous
  Country: US (occurrence: US)
  Receive Date: 20140829
  Receipt Date: 20140829
  Transmission Date: 20150326
  Serious: No
  Sender: FDA-Public Use
  Company Number: US-VIIV HEALTHCARE LIMITED-A1064409A

PATIENT
  Age: 38 Year
  Sex: Male

DRUGS (2)
  1. EPZICOM [Suspect]
     Active Substance: ABACAVIR SULFATE\LAMIVUDINE
     Indication: HIV INFECTION
     Route: 065
  2. LEXIVA [Suspect]
     Active Substance: FOSAMPRENAVIR CALCIUM
     Indication: HIV INFECTION
     Route: 065

REACTIONS (1)
  - Treatment noncompliance [Unknown]
